FAERS Safety Report 23250079 (Version 1)
Quarter: 2023Q4

REPORT INFORMATION
  Report Type: Report from Study
  Country: IT (occurrence: IT)
  Receive Date: 20231201
  Receipt Date: 20231201
  Transmission Date: 20240110
  Serious: Yes (Hospitalization)
  Sender: FDA-Public Use
  Company Number: None

PATIENT

DRUGS (4)
  1. PEGASPARGASE [Suspect]
     Active Substance: PEGASPARGASE
     Indication: Acute lymphocytic leukaemia recurrent
     Dosage: 850 IU
     Route: 042
     Dates: start: 20231113
  2. CYTARABINE [Suspect]
     Active Substance: CYTARABINE
     Indication: Acute lymphocytic leukaemia recurrent
     Dosage: 1700 MG, TWO DOSES
     Route: 042
     Dates: start: 20231111, end: 20231111
  3. VINCRISTINE [Suspect]
     Active Substance: VINCRISTINE
     Indication: Acute lymphocytic leukaemia recurrent
     Dosage: 1.3 MG, TWO ADMINISTRATION ON 1 DAY 11 AND 1 DAY 13
     Route: 042
     Dates: start: 20231111, end: 20231113
  4. METHOTREXATE (METHOTREXATE SODIUM) [Suspect]
     Active Substance: METHOTREXATE SODIUM
     Indication: Acute lymphocytic leukaemia recurrent
     Dosage: 375 MG FOR 23 HRS
     Route: 042
     Dates: start: 20231111, end: 20231112

REACTIONS (2)
  - Mucosal inflammation [Unknown]
  - Febrile bone marrow aplasia [Unknown]

NARRATIVE: CASE EVENT DATE: 20231119
